FAERS Safety Report 20080229 (Version 6)
Quarter: 2023Q2

REPORT INFORMATION
  Report Type: Report from Study
  Country: CA (occurrence: CA)
  Receive Date: 20211117
  Receipt Date: 20230531
  Transmission Date: 20230721
  Serious: Yes (Hospitalization)
  Sender: FDA-Public Use
  Company Number: CA-JNJFOC-20211133574

PATIENT
  Age: 48 Year
  Sex: Male

DRUGS (4)
  1. REMICADE [Suspect]
     Active Substance: INFLIXIMAB
     Indication: Crohn^s disease
     Dosage: ON 13-DEC-2021, THE PATIENT RECEIVED DOSE
     Route: 041
  2. REMICADE [Suspect]
     Active Substance: INFLIXIMAB
     Route: 041
     Dates: start: 20221004
  3. REMICADE [Suspect]
     Active Substance: INFLIXIMAB
     Route: 041
  4. AMOXICILLIN [Concomitant]
     Active Substance: AMOXICILLIN
     Indication: Infection prophylaxis
     Route: 065
     Dates: start: 20211124

REACTIONS (7)
  - Spinal stenosis [Recovering/Resolving]
  - Appendix disorder [Recovering/Resolving]
  - Spondylitis [Unknown]
  - Insomnia [Unknown]
  - SARS-CoV-2 test positive [Unknown]
  - Diarrhoea [Unknown]
  - Fatigue [Unknown]
